FAERS Safety Report 9674886 (Version 1)
Quarter: 2013Q4

REPORT INFORMATION
  Report Type: Report from Study
  Country: FR (occurrence: FR)
  Receive Date: 20131107
  Receipt Date: 20131107
  Transmission Date: 20140711
  Serious: Yes (Hospitalization)
  Sender: FDA-Public Use
  Company Number: PHHO2013FR014351

PATIENT
  Sex: 0

DRUGS (5)
  1. PROGRAF [Suspect]
     Indication: LIVER TRANSPLANT
     Dosage: 3-3
     Dates: start: 20130605
  2. MYFORTIC [Suspect]
     Indication: LIVER TRANSPLANT
     Dosage: 720 MG, BID
     Dates: start: 20130603
  3. ASPEGIC                                 /FRA/ [Concomitant]
     Indication: THROMBOSIS PROPHYLAXIS
     Dosage: 100X1, QD
     Dates: start: 20130606
  4. PARIET [Concomitant]
     Indication: GASTRITIS PROPHYLAXIS
     Dosage: X1, QD
     Dates: start: 20130607
  5. TARDYFERON [Concomitant]
     Indication: HYPOSIDERAEMIA
     Dosage: X1 QD
     Dates: start: 20131017

REACTIONS (1)
  - Jaundice [Not Recovered/Not Resolved]
